FAERS Safety Report 21843257 (Version 1)
Quarter: 2023Q1

REPORT INFORMATION
  Report Type: Spontaneous
  Country: US (occurrence: US)
  Receive Date: 20230110
  Receipt Date: 20230110
  Transmission Date: 20230418
  Serious: Yes (Other)
  Sender: FDA-Public Use
  Company Number: US-ELI_LILLY_AND_COMPANY-US202212014932

PATIENT
  Age: 65 Year
  Sex: Female

DRUGS (1)
  1. OLUMIANT [Suspect]
     Active Substance: BARICITINIB
     Indication: Alopecia areata
     Dosage: 2 MG, DAILY
     Route: 065
     Dates: start: 20221122

REACTIONS (8)
  - Eye haemorrhage [Unknown]
  - Pyrexia [Unknown]
  - Pain [Unknown]
  - Vomiting [Unknown]
  - Rash macular [Unknown]
  - Nausea [Unknown]
  - Oropharyngeal pain [Unknown]
  - Nasopharyngitis [Unknown]

NARRATIVE: CASE EVENT DATE: 20221123
